FAERS Safety Report 15546570 (Version 1)
Quarter: 2018Q4

REPORT INFORMATION
  Report Type: Spontaneous
  Country: RU (occurrence: RU)
  Receive Date: 20181024
  Receipt Date: 20181024
  Transmission Date: 20190205
  Serious: Yes (Life-Threatening, Other)
  Sender: FDA-Public Use
  Company Number: PHHY2018RU136179

PATIENT
  Age: 14 Year
  Sex: Female
  Weight: 70 kg

DRUGS (5)
  1. TRAMADOL. [Concomitant]
     Active Substance: TRAMADOL
     Indication: PAIN
     Dosage: UNK
     Route: 042
     Dates: start: 20181001
  2. CLEXANE [Concomitant]
     Active Substance: ENOXAPARIN SODIUM
     Indication: DEEP VEIN THROMBOSIS
     Dosage: UNK
     Route: 058
     Dates: start: 20180724
  3. TAZOCIN [Concomitant]
     Active Substance: PIPERACILLIN SODIUM\TAZOBACTAM SODIUM
     Indication: INFECTION
     Dosage: UNK
     Route: 042
     Dates: start: 20180930
  4. URSOFALK [Concomitant]
     Active Substance: URSODIOL
     Indication: BILIARY DYSKINESIA
     Dosage: UNK
     Route: 048
     Dates: start: 20180928
  5. EDICIN [Suspect]
     Active Substance: VANCOMYCIN HYDROCHLORIDE
     Indication: INFECTION
     Dosage: 2800 MG, QD (1400 MG (SINGLE DOSE), 1400 MG (DOSE THAT CAUSED AE)
     Route: 042
     Dates: start: 20181002, end: 20181002

REACTIONS (1)
  - Angioedema [Recovering/Resolving]

NARRATIVE: CASE EVENT DATE: 20181002
